FAERS Safety Report 13688289 (Version 1)
Quarter: 2017Q2

REPORT INFORMATION
  Report Type: Spontaneous
  Country: US (occurrence: US)
  Receive Date: 20170626
  Receipt Date: 20170626
  Transmission Date: 20170830
  Serious: Yes (Hospitalization, Other)
  Sender: FDA-Public Use
  Company Number: US-TEVA-666074USA

PATIENT
  Age: 41 Year
  Sex: Female

DRUGS (3)
  1. LEXAPRO [Concomitant]
     Active Substance: ESCITALOPRAM OXALATE
     Dates: start: 201603
  2. ABILIFY [Concomitant]
     Active Substance: ARIPIPRAZOLE
     Dates: start: 201603
  3. LAMOTRIGINE. [Suspect]
     Active Substance: LAMOTRIGINE
     Indication: AFFECTIVE DISORDER
     Dosage: TOOK 1/2 TABLET IN AM, 1/2 TABLET IN PM
     Route: 048
     Dates: start: 20160516, end: 20160530

REACTIONS (8)
  - Lip blister [Unknown]
  - Dysuria [Unknown]
  - Blister [Unknown]
  - Stevens-Johnson syndrome [Unknown]
  - Oral mucosal blistering [Unknown]
  - Paraesthesia [Unknown]
  - Rash generalised [Unknown]
  - Hypoaesthesia [Unknown]
